FAERS Safety Report 7572725-0 (Version None)
Quarter: 2011Q2

REPORT INFORMATION
  Report Type: 
  Country: None (occurrence: None)
  Receive Date: 20110620
  Receipt Date: 20110606
  Transmission Date: 20111010
  Serious: Yes (Life-Threatening)
  Sender: FDA-Public Use
  Company Number: 947728

PATIENT
  Age: 35 Year
  Sex: Female
  Weight: 54.6 kg

DRUGS (20)
  1. ITRACONAZOLE [Concomitant]
  2. (CALCEOS) [Concomitant]
  3. (SENNATAB) [Concomitant]
  4. CEFTAZIDIME [Concomitant]
  5. URSODIOL [Concomitant]
  6. FLUTICASONE PROPIONATE [Concomitant]
  7. TOBRAMYCIN [Concomitant]
  8. RANITIDINE [Concomitant]
  9. (INSULIN LISPRO) [Concomitant]
  10. ALBUTEROL [Concomitant]
  11. MEROPENEM [Suspect]
     Indication: CYSTIC FIBROSIS
     Dosage: 2 G GRAM(S)  INTRAVENOUS (NOT OTHERWISE SPECIFIED)
     Route: 042
     Dates: start: 20110426, end: 20110426
  12. (LANSOPRAZOL) [Concomitant]
  13. PHYTONADIONE [Concomitant]
  14. (VITAMIN A AND D) [Concomitant]
  15. (TEICOPLANIN) [Concomitant]
  16. (SYMBICORTTO) [Concomitant]
  17. (VIT. E) [Concomitant]
  18. CANDESARTAN CILEXETIL [Concomitant]
  19. PULMOZYME [Concomitant]
  20. (TIOTROPIUM) [Concomitant]

REACTIONS (5)
  - DYSPNOEA [None]
  - FLUSHING [None]
  - PRODUCT SUBSTITUTION ISSUE [None]
  - CHEST DISCOMFORT [None]
  - NAUSEA [None]
